FAERS Safety Report 4919066-5 (Version None)
Quarter: 2006Q1

REPORT INFORMATION
  Report Type: 
  Country: None (occurrence: None)
  Receive Date: 20060222
  Receipt Date: 20060215
  Transmission Date: 20060701
  Serious: Yes (Other)
  Sender: FDA-Public Use
  Company Number: PHBS2006IN02463

PATIENT
  Age: 73 Year
  Sex: Male

DRUGS (1)
  1. TRIOPTAL [Suspect]
     Indication: DIABETIC NEUROPATHY
     Dosage: 150 MG, BID
     Route: 048

REACTIONS (4)
  - DIZZINESS [None]
  - SKIN HYPERPIGMENTATION [None]
  - SOMNOLENCE [None]
  - SWELLING FACE [None]
